FAERS Safety Report 8084866-2 (Version None)
Quarter: 2012Q1

REPORT INFORMATION
  Report Type: 
  Country: None (occurrence: None)
  Receive Date: 20120128
  Receipt Date: 20110318
  Transmission Date: 20120608
  Serious: No
  Sender: FDA-Public Use
  Company Number: US-ABBOTT-11P-163-0712827-00

PATIENT
  Age: 36 Year
  Sex: Male

DRUGS (9)
  1. LEXAPRO [Concomitant]
     Indication: ANXIETY
  2. NEXIUM [Concomitant]
     Indication: PRODUCT USED FOR UNKNOWN INDICATION
  3. BUSPAR [Concomitant]
     Indication: ANXIETY
  4. BYSTOLIC [Concomitant]
     Indication: HYPERTENSION
  5. PENTASA [Concomitant]
     Indication: CROHN'S DISEASE
  6. HUMIRA [Suspect]
     Indication: CROHN'S DISEASE
     Dates: start: 20100301
  7. BENTYL [Concomitant]
     Indication: CROHN'S DISEASE
  8. PROBIOTICS SUPPLEMENT [Concomitant]
     Indication: PRODUCT USED FOR UNKNOWN INDICATION
  9. VITAMIN D [Concomitant]
     Indication: PRODUCT USED FOR UNKNOWN INDICATION

REACTIONS (6)
  - PYREXIA [None]
  - PAIN [None]
  - ARTHRALGIA [None]
  - CHILLS [None]
  - VOMITING [None]
  - INFLUENZA [None]
